FAERS Safety Report 7918671-1 (Version None)
Quarter: 2011Q4

REPORT INFORMATION
  Report Type: 
  Country: None (occurrence: None)
  Receive Date: 20111116
  Receipt Date: 20111113
  Transmission Date: 20120403
  Serious: Yes (Other)
  Sender: FDA-Public Use
  Company Number: US-BAYER-2011-110433

PATIENT

DRUGS (1)
  1. ALEVE (CAPLET) [Suspect]
     Dosage: UNK UNK, ONCE
     Route: 048

REACTIONS (1)
  - EPISTAXIS [None]
